FAERS Safety Report 22127646 (Version 1)
Quarter: 2023Q1

REPORT INFORMATION
  Report Type: Spontaneous
  Country: US (occurrence: US)
  Receive Date: 20230323
  Receipt Date: 20230323
  Transmission Date: 20230418
  Serious: No
  Sender: FDA-Public Use
  Company Number: US-BRISTOL-MYERS SQUIBB COMPANY-2023-040712

PATIENT
  Age: 15 Year
  Sex: Female
  Weight: 98 kg

DRUGS (1)
  1. THALOMID [Suspect]
     Active Substance: THALIDOMIDE
     Indication: Brain neoplasm malignant
     Dosage: FREQUECY: DAILY
     Route: 048
     Dates: start: 20221215

REACTIONS (1)
  - Off label use [Unknown]
